FAERS Safety Report 6963880-1 (Version None)
Quarter: 2010Q3

REPORT INFORMATION
  Report Type: 
  Country: None (occurrence: None)
  Receive Date: 20100831
  Receipt Date: 20100818
  Transmission Date: 20110219
  Serious: Yes (Congenital Anomaly)
  Sender: FDA-Public Use
  Company Number: 2010MA001841

PATIENT
  Sex: Female

DRUGS (1)
  1. FINASTERIDE [Suspect]
     Indication: DRUG EXPOSURE DURING PREGNANCY
     Dosage: 1  MG; TRPL
     Route: 064

REACTIONS (6)
  - CAFE AU LAIT SPOTS [None]
  - CONGENITAL HAND MALFORMATION [None]
  - FINGER DEFORMITY [None]
  - FOOT DEFORMITY [None]
  - MATERNAL DRUGS AFFECTING FOETUS [None]
  - PHALANGEAL AGENESIS [None]
